FAERS Safety Report 4637097-X (Version None)
Quarter: 2005Q2

REPORT INFORMATION
  Report Type: 
  Country: None (occurrence: None)
  Receive Date: 20050325
  Receipt Date: 20050110
  Transmission Date: 20051028
  Serious: No
  Sender: FDA-Public Use
  Company Number: USA041082228

PATIENT
  Age: 75 Year
  Sex: Female

DRUGS (2)
  1. FORTEO [Suspect]
     Indication: OSTEOPOROSIS
     Dates: start: 20040901
  2. METOPROLOL [Concomitant]

REACTIONS (7)
  - ARRHYTHMIA [None]
  - BLOOD SODIUM INCREASED [None]
  - DIZZINESS [None]
  - MUSCULAR WEAKNESS [None]
  - PAIN [None]
  - PALPITATIONS [None]
  - TACHYCARDIA [None]
